FAERS Safety Report 12632372 (Version 2)
Quarter: 2016Q3

REPORT INFORMATION
  Report Type: Spontaneous
  Country: US (occurrence: US)
  Receive Date: 20160808
  Receipt Date: 20160808
  Transmission Date: 20161109
  Serious: No
  Sender: FDA-Public Use
  Company Number: US-BEH-2016062663

PATIENT
  Sex: Female
  Weight: 54 kg

DRUGS (10)
  1. DIPHENHYDRAMINE. [Concomitant]
     Active Substance: DIPHENHYDRAMINE
  2. EPIPEN [Concomitant]
     Active Substance: EPINEPHRINE
  3. QUARTETTE [Concomitant]
     Active Substance: ETHINYL ESTRADIOL\LEVONORGESTREL
  4. PROAIR HFA [Concomitant]
     Active Substance: ALBUTEROL SULFATE
  5. PROBIOTIC [Concomitant]
     Active Substance: PROBIOTICS NOS
  6. MUCINEX [Concomitant]
     Active Substance: GUAIFENESIN
  7. MULTIVITAMIN [Concomitant]
     Active Substance: VITAMINS
  8. HIZENTRA [Suspect]
     Active Substance: HUMAN IMMUNOGLOBULIN G
     Indication: IMMUNODEFICIENCY COMMON VARIABLE
     Route: 058
     Dates: start: 20160106
  9. ACETAMINOPHEN. [Concomitant]
     Active Substance: ACETAMINOPHEN
  10. AVELOX [Concomitant]
     Active Substance: MOXIFLOXACIN HYDROCHLORIDE

REACTIONS (1)
  - Ear infection [Unknown]
